FAERS Safety Report 7728746-8 (Version None)
Quarter: 2011Q3

REPORT INFORMATION
  Report Type: 
  Country: None (occurrence: None)
  Receive Date: 20110831
  Receipt Date: 20110831
  Transmission Date: 20111222
  Serious: No
  Sender: FDA-Public Use
  Company Number: None

PATIENT
  Age: 41 Year
  Sex: Male
  Weight: 109.1 kg

DRUGS (1)
  1. SERTRALINE HYDROCHLORIDE [Suspect]
     Dosage: 200 MG ONCE PO
     Route: 048
     Dates: start: 20110722, end: 20110722

REACTIONS (2)
  - PRIAPISM [None]
  - ERECTION INCREASED [None]
